FAERS Safety Report 9557361 (Version 1)
Quarter: 2013Q3

REPORT INFORMATION
  Report Type: Spontaneous
  Country: US (occurrence: None)
  Receive Date: 20130726
  Receipt Date: 20130726
  Transmission Date: 20140515
  Serious: Yes (Hospitalization)
  Sender: FDA-Public Use
  Company Number: UTC-022796

PATIENT
  Age: 74 Year
  Sex: Female
  Weight: 70.09 kg

DRUGS (2)
  1. REMODULIN [Suspect]
     Indication: COR PULMONALE CHRONIC
     Dosage: 86.4 UG/KG (0.06 UG/KG,1 IN 1 MIN)
     Route: 042
     Dates: start: 20080131
  2. COUMADIN [Concomitant]

REACTIONS (1)
  - Device dislocation [None]
